FAERS Safety Report 16772016 (Version 1)
Quarter: 2019Q3

REPORT INFORMATION
  Report Type: Spontaneous
  Country: GB (occurrence: GB)
  Receive Date: 20190904
  Receipt Date: 20190904
  Transmission Date: 20191005
  Serious: Yes (Other)
  Sender: FDA-Public Use
  Company Number: GB-TEVA-2019-GB-1100564

PATIENT
  Age: 70 Year
  Sex: Female
  Weight: 67 kg

DRUGS (2)
  1. BISOPROLOL FUMARATE. [Suspect]
     Active Substance: BISOPROLOL FUMARATE
     Indication: ARRHYTHMIA
     Route: 048
     Dates: start: 20190516
  2. XARELTO [Concomitant]
     Active Substance: RIVAROXABAN
     Dosage: TAKEN WITH THE BISOPROLOL FUMARATE.

REACTIONS (1)
  - Nightmare [Recovered/Resolved]
